FAERS Safety Report 23354511 (Version 1)
Quarter: 2024Q1

REPORT INFORMATION
  Report Type: Spontaneous
  Country: TR (occurrence: TR)
  Receive Date: 20240101
  Receipt Date: 20240101
  Transmission Date: 20240410
  Serious: Yes (Death, Life-Threatening, Hospitalization, Other)
  Sender: FDA-Public Use
  Company Number: TR-SA-2023SA388784

PATIENT
  Age: 58 Year
  Sex: Male
  Weight: 46 kg

DRUGS (5)
  1. PEMBROLIZUMAB [Suspect]
     Active Substance: PEMBROLIZUMAB
     Indication: Oesophageal squamous cell carcinoma
     Route: 041
  2. FLUOROURACIL [Suspect]
     Active Substance: FLUOROURACIL
     Indication: Oesophageal squamous cell carcinoma
     Dosage: BOLUS
  3. FLUOROURACIL [Suspect]
     Active Substance: FLUOROURACIL
     Dosage: 46-HOUR INFUSION
  4. OXALIPLATIN [Suspect]
     Active Substance: OXALIPLATIN
     Indication: Oesophageal squamous cell carcinoma
     Dosage: 4 CYCLES
  5. LEUCOVORIN CALCIUM [Suspect]
     Active Substance: LEUCOVORIN CALCIUM
     Indication: Oesophageal squamous cell carcinoma

REACTIONS (4)
  - Pneumonia necrotising [Fatal]
  - Pneumonia salmonella [Fatal]
  - Disseminated intravascular coagulation [Fatal]
  - Bronchopulmonary aspergillosis [Fatal]
